FAERS Safety Report 15416479 (Version 2)
Quarter: 2019Q2

REPORT INFORMATION
  Report Type: Report from Study
  Country: US (occurrence: US)
  Receive Date: 20180924
  Receipt Date: 20190520
  Transmission Date: 20190711
  Serious: Yes (Other)
  Sender: FDA-Public Use
  Company Number: PHEH2018US038636

PATIENT
  Sex: Female

DRUGS (2)
  1. ENTRESTO [Suspect]
     Active Substance: SACUBITRIL\VALSARTAN
     Indication: CARDIAC FAILURE CONGESTIVE
     Dosage: 1 DF (24 MG SACUBITRIL/ 26 MG VALSARTAN), BID
     Route: 048
  2. ENTRESTO [Suspect]
     Active Substance: SACUBITRIL\VALSARTAN
     Dosage: 1.5 DF (24 MG SACUBITRIL/26 MG VALSARTAN TABLET IN THE MORNING AND TWO 24/26MG TABLETS), BID
     Route: 048

REACTIONS (2)
  - Blood pressure decreased [Unknown]
  - Foot fracture [Unknown]
